FAERS Safety Report 22531212 (Version 2)
Quarter: 2023Q4

REPORT INFORMATION
  Report Type: Spontaneous
  Country: CN (occurrence: CN)
  Receive Date: 20230607
  Receipt Date: 20231006
  Transmission Date: 20240110
  Serious: Yes (Life-Threatening)
  Sender: FDA-Public Use
  Company Number: CN-BAYER-2023A078163

PATIENT
  Age: 45 Year
  Sex: Male

DRUGS (1)
  1. ULTRAVIST [Suspect]
     Active Substance: IOPROMIDE
     Indication: Computerised tomogram heart
     Dosage: 80 ML, ONCE
     Route: 041
     Dates: start: 20230516, end: 20230516

REACTIONS (10)
  - Hypotension [None]
  - Heart rate increased [None]
  - Loss of consciousness [None]
  - Unresponsive to stimuli [Recovered/Resolved]
  - Vomiting [None]
  - Flushing [None]
  - Chest discomfort [None]
  - Suffocation feeling [None]
  - Nausea [None]
  - Incorrect drug administration rate [None]

NARRATIVE: CASE EVENT DATE: 20230516
